FAERS Safety Report 19196863 (Version 2)
Quarter: 2021Q2

REPORT INFORMATION
  Report Type: Spontaneous
  Country: DE (occurrence: DE)
  Receive Date: 20210429
  Receipt Date: 20210504
  Transmission Date: 20210717
  Serious: Yes (Hospitalization)
  Sender: FDA-Public Use
  Company Number: DE-PFIZER INC-2021446357

PATIENT
  Age: 27 Year
  Sex: Female

DRUGS (4)
  1. LORAZEPAM. [Suspect]
     Active Substance: LORAZEPAM
     Indication: RESTLESSNESS
     Dosage: (MAXIMUM DAILY DOSE 20 MG)
  2. HALOPERIDOL. [Suspect]
     Active Substance: HALOPERIDOL
     Indication: CATATONIA
     Dosage: (MAXIMUM DAILY DOSE 8 MG
     Route: 048
  3. LORAZEPAM. [Suspect]
     Active Substance: LORAZEPAM
     Indication: CATATONIA
  4. MIDAZOLAM. [Suspect]
     Active Substance: MIDAZOLAM
     Indication: CATATONIA
     Dosage: UNK

REACTIONS (7)
  - Prescribed overdose [Unknown]
  - Chills [Recovered/Resolved]
  - Off label use [Unknown]
  - Hyperkinesia [Recovered/Resolved]
  - Echolalia [Recovered/Resolved]
  - Dysphagia [Recovered/Resolved]
  - Trismus [Recovered/Resolved]
